FAERS Safety Report 10268426 (Version 4)
Quarter: 2014Q3

REPORT INFORMATION
  Report Type: Report from Study
  Country: CA (occurrence: CA)
  Receive Date: 20140630
  Receipt Date: 20140805
  Transmission Date: 20150326
  Serious: Yes (Hospitalization, Other)
  Sender: FDA-Public Use
  Company Number: CA-BRISTOL-MYERS SQUIBB COMPANY-21105952

PATIENT
  Age: 76 Year
  Sex: Female

DRUGS (6)
  1. RAMIPRIL. [Concomitant]
     Active Substance: RAMIPRIL
  2. METHOTREXATE [Concomitant]
     Active Substance: METHOTREXATE
  3. PREVACID [Concomitant]
     Active Substance: LANSOPRAZOLE
  4. ASPIRIN. [Concomitant]
     Active Substance: ASPIRIN
  5. ABATACEPT [Suspect]
     Active Substance: ABATACEPT
     Indication: RHEUMATOID ARTHRITIS
     Dosage: 750 MG, Q4WK
     Route: 042
     Dates: start: 20130605
  6. FUROSEMIDE. [Concomitant]
     Active Substance: FUROSEMIDE

REACTIONS (4)
  - Intestinal perforation [Unknown]
  - Peripheral swelling [Recovering/Resolving]
  - Large intestinal ulcer [Unknown]
  - Weight decreased [Unknown]

NARRATIVE: CASE EVENT DATE: 20140612
